FAERS Safety Report 11919688 (Version 3)
Quarter: 2016Q1

REPORT INFORMATION
  Report Type: Spontaneous
  Country: US (occurrence: US)
  Receive Date: 20160115
  Receipt Date: 20160229
  Transmission Date: 20160526
  Serious: Yes (Other)
  Sender: FDA-Public Use
  Company Number: US-PFIZER INC-2016018436

PATIENT
  Age: 57 Year
  Sex: Female
  Weight: 82.55 kg

DRUGS (8)
  1. XANAX [Suspect]
     Active Substance: ALPRAZOLAM
     Dosage: 2 X 2MG
     Route: 048
  2. HYZAAR [Concomitant]
     Active Substance: HYDROCHLOROTHIAZIDE\LOSARTAN POTASSIUM
     Indication: HYPERTENSION
     Dosage: EVERY DAY
  3. ZETIA [Concomitant]
     Active Substance: EZETIMIBE
     Dosage: UNK
  4. HYZAAR [Concomitant]
     Active Substance: HYDROCHLOROTHIAZIDE\LOSARTAN POTASSIUM
     Dosage: ONE EVERY OTHER DAY
     Dates: start: 2013
  5. XANAX [Suspect]
     Active Substance: ALPRAZOLAM
     Indication: SLEEP DISORDER
     Dosage: 2 MG, DAILY AT NIGHT
     Route: 048
     Dates: start: 198503
  6. RISPERIDONE. [Concomitant]
     Active Substance: RISPERIDONE
     Dosage: 3 MG, DAILY (ONE 1MG TABLET IN THE MORNING AND TWO 1MG TABLETS AT NIGHT)
     Route: 048
     Dates: start: 20151221
  7. DEPAKOTE [Concomitant]
     Active Substance: DIVALPROEX SODIUM
     Dosage: 1000 MG, DAILY AT NIGHT
     Route: 048
     Dates: start: 1985
  8. XANAX [Suspect]
     Active Substance: ALPRAZOLAM
     Dosage: 1MG TABLET IN THE MORNING AND 1 MG AT 2PM AND ONE 2MG TABLET AT NIGHT
     Route: 048
     Dates: start: 20151221

REACTIONS (8)
  - Drug effect incomplete [Recovering/Resolving]
  - Asthma [Not Recovered/Not Resolved]
  - Hypertension [Not Recovered/Not Resolved]
  - Headache [Unknown]
  - Diabetes mellitus [Recovered/Resolved]
  - Dysgeusia [Unknown]
  - Blood cholesterol increased [Not Recovered/Not Resolved]
  - Product taste abnormal [Unknown]

NARRATIVE: CASE EVENT DATE: 201504
